FAERS Safety Report 4383227-7 (Version None)
Quarter: 2004Q2

REPORT INFORMATION
  Report Type: 
  Country: None (occurrence: None)
  Receive Date: 20040618
  Receipt Date: 20040607
  Transmission Date: 20050107
  Serious: Yes (Hospitalization)
  Sender: FDA-Public Use
  Company Number: 04P-087-0261443-00

PATIENT
  Age: 42 Year
  Sex: Male
  Weight: 63.5 kg

DRUGS (7)
  1. AKINETON [Suspect]
     Indication: SCHIZOPHRENIA
     Dosage: 1 MG, 3 IN 1 D, ORAL
     Route: 048
  2. LODOPIN (ZOTEPINE) (ZOTEPINE) [Suspect]
     Indication: SCHIZOPHRENIA
     Dosage: 100 MG, 3 IN 1 D; ORAL
     Route: 048
  3. QUETIAPINE [Suspect]
     Indication: SCHIZOPHRENIA
     Dosage: 100 MG, 3  IN 1 D; ORAL
     Route: 048
  4. SULTOPRIDE [Suspect]
     Indication: SCHIZOPHRENIA
     Dosage: 600 MG, 2 IN 1 D, ORAL
     Route: 048
  5. CHLORPROMAZINE HCL [Suspect]
     Indication: SCHIZOPHRENIA
     Dosage: 100 MG, 3 IN 1 D; ORAL
     Route: 048
  6. BROMPERIDOL [Suspect]
     Indication: SCHIZOPHRENIA
     Dosage: 7 MG, 3 IN 1 D; ORAL
     Route: 048
  7. HALOPERIDOL DECANOATE [Suspect]
     Indication: SCHIZOPHRENIA
     Dosage: 100 MG, 1 IN 1 M, INTRAMUSCULAR
     Route: 030
     Dates: end: 20020802

REACTIONS (3)
  - DIABETES MELLITUS [None]
  - TYPE V HYPERLIPIDAEMIA [None]
  - XANTHOMA [None]
